FAERS Safety Report 24776554 (Version 2)
Quarter: 2025Q1

REPORT INFORMATION
  Report Type: Spontaneous
  Country: BR (occurrence: BR)
  Receive Date: 20241226
  Receipt Date: 20250203
  Transmission Date: 20250408
  Serious: Yes (Other)
  Sender: BOEHRINGER INGELHEIM
  Company Number: BR-Komodo Health-a23aa000004q80oAAA

PATIENT
  Age: 78 Year
  Sex: Female
  Weight: 57 kg

DRUGS (4)
  1. MICARDIS [Suspect]
     Active Substance: TELMISARTAN
     Indication: Hypertension
  2. MICARDIS [Suspect]
     Active Substance: TELMISARTAN
     Dosage: 1 TABLET A DAY IN THE MORNING
  3. MICARDIS [Suspect]
     Active Substance: TELMISARTAN
     Dates: start: 20241203
  4. CHLOROTHIAZIDE [Concomitant]
     Active Substance: CHLOROTHIAZIDE
     Indication: Hypertension

REACTIONS (7)
  - Glaucoma [Unknown]
  - Product with quality issue administered [Unknown]
  - Product with quality issue administered [Unknown]
  - Hypotension [Unknown]
  - Glucose tolerance impaired [Unknown]
  - Blood cholesterol increased [Unknown]
  - Thyroid disorder [Unknown]

NARRATIVE: CASE EVENT DATE: 20241101
